FAERS Safety Report 24042956 (Version 1)
Quarter: 2024Q3

REPORT INFORMATION
  Report Type: Spontaneous
  Country: BG (occurrence: BG)
  Receive Date: 20240702
  Receipt Date: 20240702
  Transmission Date: 20241017
  Serious: Yes (Other)
  Sender: MYLAN
  Company Number: BG-002147023-NVSC2024BG127202

PATIENT
  Age: 74 Year
  Sex: Female

DRUGS (3)
  1. LETROZOLE [Suspect]
     Active Substance: LETROZOLE
     Indication: Breast cancer metastatic
     Dosage: UNK
     Route: 065
     Dates: start: 201711
  2. RIBOCICLIB [Suspect]
     Active Substance: RIBOCICLIB
     Indication: Breast cancer metastatic
     Dosage: UNK
     Route: 065
     Dates: start: 201711
  3. DENOSUMAB [Concomitant]
     Active Substance: DENOSUMAB
     Indication: Breast cancer metastatic
     Dosage: UNK
     Route: 065
     Dates: start: 2023

REACTIONS (4)
  - Malignant neoplasm progression [Recovered/Resolved with Sequelae]
  - Second primary malignancy [Unknown]
  - Metastases to bone [Unknown]
  - Breast cancer metastatic [Recovered/Resolved with Sequelae]

NARRATIVE: CASE EVENT DATE: 20220301
